FAERS Safety Report 25289613 (Version 1)
Quarter: 2025Q2

REPORT INFORMATION
  Report Type: Report from Study
  Country: US (occurrence: US)
  Receive Date: 20250509
  Receipt Date: 20250509
  Transmission Date: 20250716
  Serious: Yes (Other)
  Sender: ABBVIE
  Company Number: US-ABBVIE-6267218

PATIENT
  Age: 42 Year
  Sex: Male

DRUGS (1)
  1. SKYRIZI [Suspect]
     Active Substance: RISANKIZUMAB-RZAA
     Indication: Psoriasis
     Route: 058
     Dates: start: 2020

REACTIONS (11)
  - Loss of consciousness [Unknown]
  - Heart rate irregular [Unknown]
  - Anxiety [Not Recovered/Not Resolved]
  - Seasonal allergy [Not Recovered/Not Resolved]
  - Menstruation irregular [Unknown]
  - Chest pain [Unknown]
  - Heavy menstrual bleeding [Unknown]
  - Asthma [Not Recovered/Not Resolved]
  - Eating disorder [Unknown]
  - Depression [Not Recovered/Not Resolved]
  - Dyspnoea [Unknown]

NARRATIVE: CASE EVENT DATE: 20240401
